FAERS Safety Report 17914672 (Version 2)
Quarter: 2020Q3

REPORT INFORMATION
  Report Type: Report from Study
  Country: US (occurrence: US)
  Receive Date: 20200619
  Receipt Date: 20200813
  Transmission Date: 20201103
  Serious: Yes (Hospitalization)
  Sender: FDA-Public Use
  Company Number: US-SHIRE-US202019860

PATIENT
  Sex: Male
  Weight: 68.93 kg

DRUGS (2)
  1. CINRYZE [Suspect]
     Active Substance: HUMAN C1-ESTERASE INHIBITOR
     Dosage: 1000 INTERNATIONAL UNIT, 1X/WEEK
     Route: 042
     Dates: start: 20131231
  2. CINRYZE [Suspect]
     Active Substance: HUMAN C1-ESTERASE INHIBITOR
     Indication: IMMUNE SYSTEM DISORDER
     Dosage: 500 MILLILITER
     Route: 065

REACTIONS (2)
  - Hereditary angioedema [Recovered/Resolved]
  - Pancreatic disorder [Unknown]
